FAERS Safety Report 10409430 (Version 1)
Quarter: 2014Q3

REPORT INFORMATION
  Report Type: Spontaneous
  Country: IT (occurrence: None)
  Receive Date: 20140822
  Receipt Date: 20140822
  Transmission Date: 20150326
  Serious: Yes (Hospitalization)
  Sender: FDA-Public Use
  Company Number: 2417298

PATIENT
  Age: 90 Year
  Sex: Female

DRUGS (3)
  1. VANCOMYCIN HYDROCHLORIDE. [Suspect]
     Active Substance: VANCOMYCIN HYDROCHLORIDE
     Indication: POSTOPERATIVE WOUND INFECTION
     Dosage: 2 G GRAM(S( UKNOWN)?(NOT OTHERWISE SPECIFIED)
     Route: 042
     Dates: start: 20100430, end: 20100503
  2. TARGOSID [Suspect]
     Active Substance: TEICOPLANIN
     Indication: POSTOPERATIVE WOUND INFECTION
     Dosage: (NOT OTHERWISE SPECIFIED)
     Route: 042
     Dates: start: 20100507, end: 20100519
  3. CLEXANE [Concomitant]
     Active Substance: ENOXAPARIN SODIUM

REACTIONS (2)
  - Dermatitis exfoliative [None]
  - Drug interaction [None]

NARRATIVE: CASE EVENT DATE: 20100510
